FAERS Safety Report 11368780 (Version 4)
Quarter: 2019Q1

REPORT INFORMATION
  Report Type: Report from Study
  Country: US (occurrence: US)
  Receive Date: 20150812
  Receipt Date: 20190130
  Transmission Date: 20190417
  Serious: No
  Sender: FDA-Public Use
  Company Number: PHHY2015US070639

PATIENT
  Age: 44 Year
  Sex: Female

DRUGS (2)
  1. SOLU-MEDROL [Concomitant]
     Active Substance: METHYLPREDNISOLONE SODIUM SUCCINATE
     Indication: MULTIPLE SCLEROSIS RELAPSE
     Dosage: UNK
     Route: 065
     Dates: start: 20141021, end: 20141024
  2. GILENYA [Suspect]
     Active Substance: FINGOLIMOD HYDROCHLORIDE
     Indication: MULTIPLE SCLEROSIS
     Dosage: UNK UNK, QD
     Route: 048

REACTIONS (10)
  - Foot deformity [Unknown]
  - Keratosis pilaris [Unknown]
  - Seborrhoeic keratosis [Unknown]
  - Rosacea [Unknown]
  - Plantar fasciitis [Unknown]
  - Muscle spasms [Unknown]
  - Hypotension [Unknown]
  - Haemangioma [Unknown]
  - Tendonitis [Unknown]
  - Melanocytic naevus [Unknown]

NARRATIVE: CASE EVENT DATE: 20140909
